FAERS Safety Report 5293987-9 (Version None)
Quarter: 2007Q2

REPORT INFORMATION
  Report Type: 
  Country: None (occurrence: None)
  Receive Date: 20070405
  Receipt Date: 20070326
  Transmission Date: 20071010
  Serious: Yes (Hospitalization)
  Sender: FDA-Public Use
  Company Number: 2007BI006520

PATIENT
  Age: 42 Year
  Sex: Female
  Weight: 58.0604 kg

DRUGS (8)
  1. AVONEX [Suspect]
     Indication: MULTIPLE SCLEROSIS
     Dosage: 30 UG;QW;IM
     Route: 030
     Dates: start: 20060401, end: 20070224
  2. SKELAXIN [Concomitant]
  3. BACLOFEN [Concomitant]
  4. FOLIC ACID [Concomitant]
  5. LYRICA [Concomitant]
  6. CATAFLAM [Concomitant]
  7. PROPRANOLOL [Concomitant]
  8. METOCOPRAMIDE [Concomitant]

REACTIONS (2)
  - HALLUCINATION [None]
  - PSYCHOTIC DISORDER [None]
